FAERS Safety Report 17865941 (Version 5)
Quarter: 2020Q3

REPORT INFORMATION
  Report Type: Spontaneous
  Country: US (occurrence: US)
  Receive Date: 20200605
  Receipt Date: 20200814
  Transmission Date: 20201103
  Serious: Yes (Other)
  Sender: FDA-Public Use
  Company Number: US-PFIZER INC-2020220064

PATIENT
  Age: 68 Year
  Sex: Female
  Weight: 86.18 kg

DRUGS (3)
  1. LETROZOLE. [Concomitant]
     Active Substance: LETROZOLE
     Indication: BREAST CANCER METASTATIC
     Dosage: 2.5 MG, DAILY
     Dates: start: 20200221
  2. ROSUVASTATIN. [Concomitant]
     Active Substance: ROSUVASTATIN
     Dosage: UNK
  3. IBRANCE [Suspect]
     Active Substance: PALBOCICLIB
     Indication: BREAST CANCER METASTATIC
     Dosage: 125 MG, CYCLIC (ONCE A DAY, ON FOR 21 DAYS AND OFF FOR 7 DAYS)
     Route: 048
     Dates: start: 20200221

REACTIONS (3)
  - Crying [Unknown]
  - Hot flush [Not Recovered/Not Resolved]
  - Chest injury [Unknown]

NARRATIVE: CASE EVENT DATE: 20200221
